FAERS Safety Report 12999147 (Version 1)
Quarter: 2016Q4

REPORT INFORMATION
  Report Type: Spontaneous
  Country: US (occurrence: US)
  Receive Date: 20161205
  Receipt Date: 20161205
  Transmission Date: 20170207
  Serious: No
  Sender: FDA-Public Use
  Company Number: US-GLAXOSMITHKLINE-US2016178191

PATIENT
  Age: 92 Year
  Sex: Female

DRUGS (1)
  1. NICODERM CQ [Suspect]
     Active Substance: NICOTINE
     Indication: SMOKING CESSATION THERAPY
     Dosage: 14 MG, UNK
     Dates: start: 20161129

REACTIONS (3)
  - Nicotine dependence [Not Recovered/Not Resolved]
  - Abnormal dreams [Recovered/Resolved]
  - Product selection error [Unknown]

NARRATIVE: CASE EVENT DATE: 20161129
